FAERS Safety Report 5840156-7 (Version None)
Quarter: 2008Q3

REPORT INFORMATION
  Report Type: 
  Country: None (occurrence: None)
  Receive Date: 20080811
  Receipt Date: 20080728
  Transmission Date: 20090109
  Serious: No
  Sender: FDA-Public Use
  Company Number: US-ELI_LILLY_AND_COMPANY-US200807005702

PATIENT
  Sex: Male

DRUGS (1)
  1. CIALIS [Suspect]
     Dosage: 5 MG, UNK

REACTIONS (2)
  - EAR DISCOMFORT [None]
  - VISION BLURRED [None]
